FAERS Safety Report 8851292 (Version 1)
Quarter: 2012Q4

REPORT INFORMATION
  Report Type: 
  Country: US (occurrence: US)
  Receive Date: 20121021
  Receipt Date: 20121021
  Transmission Date: 20130627
  Serious: No
  Sender: FDA-Public Use
  Company Number: US-009507513-2012SP031988

PATIENT
  Sex: Female

DRUGS (3)
  1. ASMANEX TWISTHALER [Suspect]
     Indication: ASTHMA
     Dosage: 110 Microgram, qd
     Route: 055
     Dates: start: 201205
  2. SINGULAIR [Concomitant]
  3. ZYRTEC [Concomitant]
     Dosage: OVER-THE-COUNTER PRODUCT

REACTIONS (1)
  - Burning sensation [Recovering/Resolving]
